FAERS Safety Report 12327170 (Version 1)
Quarter: 2016Q2

REPORT INFORMATION
  Report Type: Spontaneous
  Country: US (occurrence: None)
  Receive Date: 20160502
  Receipt Date: 20160502
  Transmission Date: 20160815
  Serious: Yes (Hospitalization)
  Sender: FDA-Public Use
  Company Number: None

PATIENT
  Age: 46 Year
  Sex: Female
  Weight: 91.63 kg

DRUGS (15)
  1. TYLENOL [Concomitant]
     Active Substance: ACETAMINOPHEN
  2. MAGOXIDE [Concomitant]
  3. ALEVE [Concomitant]
     Active Substance: NAPROXEN SODIUM
  4. MULTIVITAMIN [Concomitant]
     Active Substance: VITAMINS
  5. OXYCODONE [Concomitant]
     Active Substance: OXYCODONE
  6. KLOR-CON [Concomitant]
     Active Substance: POTASSIUM CHLORIDE
  7. CALCIUM CARBONATE. [Concomitant]
     Active Substance: CALCIUM CARBONATE
  8. NEURONTIN [Concomitant]
     Active Substance: GABAPENTIN
  9. VITAMIN D [Concomitant]
     Active Substance: CHOLECALCIFEROL
  10. CYANOCOBALAMINE [Concomitant]
     Active Substance: CYANOCOBALAMIN
  11. INTERFERON GAMMA 1B [Suspect]
     Active Substance: INTERFERON GAMMA-1B
     Indication: BREAST CANCER METASTATIC
     Route: 058
     Dates: start: 20160426
  12. NIVOLUMAB [Suspect]
     Active Substance: NIVOLUMAB
     Indication: BREAST CANCER METASTATIC
     Route: 042
     Dates: start: 20160404
  13. VITAMIN B12 [Concomitant]
     Active Substance: CYANOCOBALAMIN
  14. FENTANYL TRANSDERMAL SYSTEM [Concomitant]
     Active Substance: FENTANYL
  15. FISH OIL [Concomitant]
     Active Substance: FISH OIL

REACTIONS (12)
  - Disease progression [None]
  - Condition aggravated [None]
  - Lymphoedema [None]
  - Pleural effusion [None]
  - Refusal of treatment by patient [None]
  - Pyrexia [None]
  - Fatigue [None]
  - Oedema [None]
  - Hypomagnesaemia [None]
  - Hypokalaemia [None]
  - Anaemia [None]
  - Asthenia [None]

NARRATIVE: CASE EVENT DATE: 20160418
